FAERS Safety Report 13111513 (Version 2)
Quarter: 2017Q1

REPORT INFORMATION
  Report Type: Spontaneous
  Country: US (occurrence: US)
  Receive Date: 20170112
  Receipt Date: 20170206
  Transmission Date: 20170428
  Serious: No
  Sender: FDA-Public Use
  Company Number: US-TAIHO ONCOLOGY INC-EU-2017-00038

PATIENT
  Age: 84 Year
  Sex: Male

DRUGS (4)
  1. LONSURF [Suspect]
     Active Substance: TIPIRACIL HYDROCHLORIDE\TRIFLURIDINE
     Indication: COLON CANCER
     Route: 048
     Dates: start: 20161230
  2. PANTOPRAZOLE [Concomitant]
     Active Substance: PANTOPRAZOLE SODIUM
     Dosage: NI
  3. TYLENOL [Concomitant]
     Active Substance: ACETAMINOPHEN
     Dosage: NI
  4. CENTRUM [Concomitant]
     Active Substance: VITAMINS
     Dosage: NI

REACTIONS (4)
  - Decreased appetite [Unknown]
  - Pain [Unknown]
  - Asthenia [Unknown]
  - Flatulence [Unknown]

NARRATIVE: CASE EVENT DATE: 201612
